APPROVED DRUG PRODUCT: METOCLOPRAMIDE HYDROCHLORIDE
Active Ingredient: METOCLOPRAMIDE HYDROCHLORIDE
Strength: EQ 10MG BASE
Dosage Form/Route: TABLET;ORAL
Application: A071213 | Product #001
Applicant: INTERPHARM INC
Approved: Sep 24, 1986 | RLD: No | RS: No | Type: DISCN